FAERS Safety Report 12648251 (Version 1)
Quarter: 2016Q3

REPORT INFORMATION
  Report Type: Spontaneous
  Country: US (occurrence: US)
  Receive Date: 20160812
  Receipt Date: 20160812
  Transmission Date: 20161109
  Serious: No
  Sender: FDA-Public Use
  Company Number: US-TAKEDA-2016TUS013610

PATIENT
  Age: 55 Year
  Sex: Male
  Weight: 78.91 kg

DRUGS (2)
  1. BUDESONIDE. [Concomitant]
     Active Substance: BUDESONIDE
     Indication: SLEEP DISORDER
     Dosage: UNK
  2. ENTYVIO [Suspect]
     Active Substance: VEDOLIZUMAB
     Indication: POST PROCEDURAL COMPLICATION
     Dosage: 300 MG, UNK
     Route: 042
     Dates: start: 20160728

REACTIONS (3)
  - Rash pruritic [Recovered/Resolved]
  - Off label use [Unknown]
  - Weight increased [Recovered/Resolved]

NARRATIVE: CASE EVENT DATE: 201510
